FAERS Safety Report 25684347 (Version 1)
Quarter: 2025Q3

REPORT INFORMATION
  Report Type: Spontaneous
  Country: US (occurrence: US)
  Receive Date: 20250815
  Receipt Date: 20250815
  Transmission Date: 20251020
  Serious: Yes (Hospitalization, Disabling, Other)
  Sender: MERCK SHARP & DOHME LLC
  Company Number: US-009507513-2317433

PATIENT
  Age: 8 Decade
  Sex: Male

DRUGS (2)
  1. KEYTRUDA [Suspect]
     Active Substance: PEMBROLIZUMAB
     Indication: Metastatic carcinoma of the bladder
  2. PADCEV [Suspect]
     Active Substance: ENFORTUMAB VEDOTIN-EJFV
     Indication: Metastatic carcinoma of the bladder

REACTIONS (3)
  - Enteritis [Unknown]
  - Weight decreased [Unknown]
  - Gastrointestinal disorder [Unknown]
